FAERS Safety Report 12372593 (Version 3)
Quarter: 2016Q4

REPORT INFORMATION
  Report Type: Spontaneous
  Country: US (occurrence: US)
  Receive Date: 20160516
  Receipt Date: 20161116
  Transmission Date: 20170207
  Serious: No
  Sender: FDA-Public Use
  Company Number: US-PFIZER INC-2015017791

PATIENT
  Age: 82 Year
  Sex: Female

DRUGS (12)
  1. LEVOTHYROXINE. [Concomitant]
     Active Substance: LEVOTHYROXINE
     Dosage: 50 UG, 1X/DAY
     Route: 048
  2. SYSTANE BALANCE [Concomitant]
     Active Substance: PROPYLENE GLYCOL
     Dosage: UNK (0.6%)
  3. LOTEMAX [Concomitant]
     Active Substance: LOTEPREDNOL ETABONATE
     Dosage: UNK UNK, 4X/DAY [1 DROP INTO AFFECTED EYE(S)]
     Route: 047
  4. CELEBREX [Suspect]
     Active Substance: CELECOXIB
     Dosage: 100 MG, 1X/DAY
     Route: 048
     Dates: start: 20140814
  5. GATIFLOXACIN. [Concomitant]
     Active Substance: GATIFLOXACIN
     Dosage: UNK, 2X/DAY (0.5% 1 DROP IN RIGHT EYE 2 TIMES PER DAY WHILE AWAKE ON DAYS 2 THROUGH 7 OF TREATMENT)
     Route: 047
  6. CELEBREX [Suspect]
     Active Substance: CELECOXIB
     Dosage: 100 MG, 1X/DAY
     Route: 048
     Dates: start: 20160920
  7. SENNA [Concomitant]
     Active Substance: SENNA LEAF\SENNOSIDES\SENNOSIDES A AND B
     Indication: CONSTIPATION
     Dosage: 17.2 MG, AS NEEDED (8.6 MG TAKE 2 TABLET ONCE DAILY)
     Route: 048
     Dates: start: 20141231
  8. REFRESH CLASSIC LUCRICANT EYE DROPS [Concomitant]
     Dosage: UNK (1.4-0.6%) (AS DIRECTED )
     Route: 047
  9. ALENDRONATE [Concomitant]
     Active Substance: ALENDRONATE SODIUM
     Dosage: 70 MG, WEEKLY (ONCE WEEKLY IN THE MORNING)
     Route: 048
  10. OXYBUTYNIN HCL [Concomitant]
     Active Substance: OXYBUTYNIN
     Dosage: 5 MG, 1X/DAY (QHS)
     Route: 048
  11. CLORAZEPATE DIPOTASSIUM. [Concomitant]
     Active Substance: CLORAZEPATE DIPOTASSIUM
     Dosage: 7.5 MG, 1X/DAY
     Route: 048
  12. NORCO [Concomitant]
     Active Substance: ACETAMINOPHEN\HYDROCODONE BITARTRATE
     Indication: PAIN
     Dosage: 1 DF, AS NEEDED 4-6 HOURS (HYDROCODONE BITARTRATE 5MG, PARACETAMOL325MG)
     Route: 048
     Dates: start: 20150107

REACTIONS (1)
  - Hypoacusis [Unknown]
